FAERS Safety Report 4412921-4 (Version None)
Quarter: 2004Q3

REPORT INFORMATION
  Report Type: 
  Country: None (occurrence: None)
  Receive Date: 20040802
  Receipt Date: 20040701
  Transmission Date: 20050211
  Serious: Yes (Other)
  Sender: FDA-Public Use
  Company Number: PHFR2004GB02687

PATIENT
  Age: 26 Year
  Sex: Male

DRUGS (3)
  1. CLOZARIL [Suspect]
     Indication: SCHIZOPHRENIA
     Dosage: 125 MG/DAY
     Route: 048
  2. LITHIUM [Concomitant]
     Indication: DEPRESSION
     Dosage: 100 MG, BIW
     Route: 048
  3. OMACOR [Concomitant]
     Indication: HYPERLIPIDAEMIA
     Dosage: 5 CAPS/DAY

REACTIONS (8)
  - ALANINE AMINOTRANSFERASE INCREASED [None]
  - BLOOD BILIRUBIN INCREASED [None]
  - BLOOD TRIGLYCERIDES INCREASED [None]
  - DISEASE PROGRESSION [None]
  - HEPATIC STEATOSIS [None]
  - HYPERLIPIDAEMIA [None]
  - LIPIDS ABNORMAL [None]
  - LIVER FUNCTION TEST ABNORMAL [None]
